FAERS Safety Report 8420638 (Version 2)
Quarter: 2013Q1

REPORT INFORMATION
  Report Type: Spontaneous
  Country: US (occurrence: US)
  Receive Date: 20120222
  Receipt Date: 20130110
  Transmission Date: 20140127
  Serious: Yes (Hospitalization)
  Sender: FDA-Public Use
  Company Number: US-GLAXOSMITHKLINE-A0849298A

PATIENT
  Sex: Male

DRUGS (3)
  1. AVANDIA [Suspect]
     Indication: DIABETES MELLITUS
     Route: 048
  2. VERELAN [Concomitant]
  3. GLUCOPHAGE [Concomitant]

REACTIONS (4)
  - Myocardial infarction [Unknown]
  - Syncope [Unknown]
  - Coronary artery disease [Unknown]
  - Cardiovascular disorder [Unknown]
